FAERS Safety Report 9320352 (Version 1)
Quarter: 2013Q2

REPORT INFORMATION
  Report Type: Spontaneous
  Country: DK (occurrence: GB)
  Receive Date: 20130530
  Receipt Date: 20130530
  Transmission Date: 20140414
  Serious: Yes (Other)
  Sender: FDA-Public Use
  Company Number: GB-FRI-1000045511

PATIENT
  Age: 30 Year
  Sex: Male
  Weight: 87 kg

DRUGS (3)
  1. ESCITALOPRAM [Suspect]
     Indication: DEPRESSION
     Dosage: OVERDOSE: 40 MG DAILY
     Route: 048
     Dates: start: 20101112, end: 20130112
  2. CITALOPRAM [Concomitant]
     Indication: DEPRESSION
     Dosage: 20 MG
     Route: 048
     Dates: start: 20031112, end: 20101112
  3. VENTOLIN [Concomitant]

REACTIONS (5)
  - Libido decreased [Not Recovered/Not Resolved]
  - Sweat gland disorder [Recovered/Resolved with Sequelae]
  - Alcohol abuse [Recovering/Resolving]
  - Drug abuse [Recovering/Resolving]
  - Overdose [Unknown]
